FAERS Safety Report 8193841-9 (Version None)
Quarter: 2012Q1

REPORT INFORMATION
  Report Type: 
  Country: None (occurrence: None)
  Receive Date: 20120308
  Receipt Date: 20120229
  Transmission Date: 20120608
  Serious: Yes (Hospitalization, Other)
  Sender: FDA-Public Use
  Company Number: US-BAYER-2011-012982

PATIENT
  Age: 24 Year
  Sex: Female
  Weight: 104 kg

DRUGS (10)
  1. CHLORHEXAMED [Concomitant]
     Dosage: UNK
     Dates: start: 20090625
  2. PREDNISONE TAB [Concomitant]
     Dosage: UNK
     Dates: start: 20100128
  3. YAZ [Suspect]
     Indication: CONTRACEPTION
     Dosage: UNK
     Dates: start: 20080401, end: 20090101
  4. YASMIN [Suspect]
     Indication: CONTRACEPTION
     Dosage: UNK
     Dates: start: 20071101, end: 20080201
  5. AMOXICILLIN [Concomitant]
     Dosage: UNK
     Dates: start: 20100128
  6. YAZ [Suspect]
     Dosage: UNK
     Dates: start: 20010101, end: 20090101
  7. LEVORA 0.15/30-21 [Concomitant]
     Dosage: UNK
     Dates: start: 20090801, end: 20091101
  8. DICLOFEN [Concomitant]
     Dosage: UNK
     Dates: start: 20091229
  9. YASMIN [Suspect]
     Dosage: UNK
     Dates: start: 20010101, end: 20090101
  10. HYDROCODONE BITARTRATE [Concomitant]
     Dosage: UNK
     Dates: start: 20090625

REACTIONS (13)
  - MENTAL DISORDER [None]
  - EMOTIONAL DISTRESS [None]
  - CEREBROVASCULAR ACCIDENT [None]
  - CEREBRAL INFARCTION [None]
  - INJURY [None]
  - GENERAL PHYSICAL HEALTH DETERIORATION [None]
  - CONVULSION [None]
  - HEARING IMPAIRED [None]
  - TONGUE BITING [None]
  - PAIN [None]
  - CEREBRAL THROMBOSIS [None]
  - DEEP VEIN THROMBOSIS [None]
  - ANXIETY [None]
